FAERS Safety Report 17247956 (Version 1)
Quarter: 2020Q1

REPORT INFORMATION
  Report Type: Spontaneous
  Country: US (occurrence: US)
  Receive Date: 20200108
  Receipt Date: 20200108
  Transmission Date: 20200409
  Serious: No
  Sender: FDA-Public Use
  Company Number: US-AMAG PHARMACEUTICALS, INC.-AMAG201906677

PATIENT
  Age: 23 Year
  Sex: Female
  Weight: 95.79 kg

DRUGS (3)
  1. MAKENA [Suspect]
     Active Substance: HYDROXYPROGESTERONE CAPROATE
     Indication: PREMATURE DELIVERY
     Dosage: THE PATIENT TOOK A TOTAL OF THREE INJECTIONS. THE REPORTER STATED SHE STOPPED TAKING THE MAKENA AI ^
     Route: 058
     Dates: start: 20191203
  2. LEVOTHYROXINE. [Concomitant]
     Active Substance: LEVOTHYROXINE
     Indication: HYPOTHYROIDISM
     Dosage: THE PATIENT STARTED TAKING THIS IN DEC2018. THE PATIENT TAKES 75 MCG PO EVERY DAY.
     Route: 048
     Dates: start: 201812
  3. PRENATAL VITAMIN [Concomitant]
     Active Substance: VITAMINS
     Indication: NUTRITIONAL SUPPLEMENTATION
     Dosage: THE PATIENT TAKES ONE TABLET PO EVERY DAY.
     Route: 048

REACTIONS (5)
  - Injection site erythema [Not Recovered/Not Resolved]
  - Injection site urticaria [Not Recovered/Not Resolved]
  - Product dose omission [Unknown]
  - Injection site warmth [Not Recovered/Not Resolved]
  - Injection site pain [Not Recovered/Not Resolved]
